FAERS Safety Report 9711101 (Version 1)
Quarter: 2013Q4

REPORT INFORMATION
  Report Type: Spontaneous
  Country: US (occurrence: US)
  Receive Date: 20131126
  Receipt Date: 20131126
  Transmission Date: 20140711
  Serious: Yes (Other)
  Sender: FDA-Public Use
  Company Number: US-BRISTOL-MYERS SQUIBB COMPANY-19139542

PATIENT
  Age: 73 Year
  Sex: Male
  Weight: 99.77 kg

DRUGS (3)
  1. BYETTA [Suspect]
     Indication: TYPE 2 DIABETES MELLITUS
     Dosage: DOSE INCREASED TO 10MCG?INTER AND RESTARTED ON UNK DATE?10 MCG:24JUL2013
     Route: 058
  2. BENAZEPRIL HCL [Concomitant]
  3. SIMVASTATIN [Concomitant]

REACTIONS (2)
  - Weight decreased [Unknown]
  - Circumstance or information capable of leading to medication error [Unknown]
